FAERS Safety Report 9034484 (Version 1)
Quarter: 2013Q1

REPORT INFORMATION
  Report Type: Spontaneous
  Country: IN (occurrence: None)
  Receive Date: 20130111
  Receipt Date: 20130111
  Transmission Date: 20140127
  Serious: Yes (Other)
  Sender: FDA-Public Use
  Company Number: 2012SP000246

PATIENT
  Age: 27 Year
  Sex: Male

DRUGS (4)
  1. HALOPERIDOL DECANOATE [Suspect]
     Indication: BIPOLAR DISORDER
     Route: 030
  2. CARBAMAZEPINE (CARBAMAZEPINE) CHEWABLE TABLET [Suspect]
     Indication: BIPOLAR DISORDER
  3. CARBAMAZEPINE (CARBAMAZEPINE) CHEWABLE TABLET [Suspect]
  4. PROMETHAZINE [Concomitant]

REACTIONS (2)
  - Stevens-Johnson syndrome [None]
  - Toxic epidermal necrolysis [None]
